FAERS Safety Report 19299707 (Version 1)
Quarter: 2021Q2

REPORT INFORMATION
  Report Type: Spontaneous
  Country: US (occurrence: US)
  Receive Date: 20210524
  Receipt Date: 20210524
  Transmission Date: 20210717
  Serious: No
  Sender: FDA-Public Use
  Company Number: None

PATIENT
  Age: 83 Year
  Sex: Male

DRUGS (11)
  1. ALECENSA [Suspect]
     Active Substance: ALECTINIB HYDROCHLORIDE
     Route: 048
  2. FUROSEMIDE. [Concomitant]
     Active Substance: FUROSEMIDE
  3. ALLOPURINOL. [Concomitant]
     Active Substance: ALLOPURINOL
  4. GABAPENTIN. [Concomitant]
     Active Substance: GABAPENTIN
  5. ATORVASTATIN CALCIUM. [Concomitant]
     Active Substance: ATORVASTATIN CALCIUM
  6. VIAGRA [Concomitant]
     Active Substance: SILDENAFIL CITRATE
  7. FISH OIL + D3 [Concomitant]
  8. TELMISARTAN. [Concomitant]
     Active Substance: TELMISARTAN
  9. SUMATRIPTAN SUCCINATE. [Concomitant]
     Active Substance: SUMATRIPTAN SUCCINATE
  10. XARELTO [Concomitant]
     Active Substance: RIVAROXABAN
  11. METHOCARBAMOL. [Concomitant]
     Active Substance: METHOCARBAMOL

REACTIONS (2)
  - Dyspnoea [None]
  - Constipation [None]

NARRATIVE: CASE EVENT DATE: 20210519
